FAERS Safety Report 12677971 (Version 7)
Quarter: 2019Q2

REPORT INFORMATION
  Report Type: Report from Study
  Country: CO (occurrence: CO)
  Receive Date: 20160823
  Receipt Date: 20190419
  Transmission Date: 20190711
  Serious: Yes (Hospitalization, Other)
  Sender: FDA-Public Use
  Company Number: PHHY2015CO167185

PATIENT
  Age: 34 Year
  Sex: Female
  Weight: 55 kg

DRUGS (8)
  1. REVOLADE [Suspect]
     Active Substance: ELTROMBOPAG
     Indication: IMMUNE THROMBOCYTOPENIC PURPURA
     Dosage: 4 DF, QD
     Route: 048
     Dates: start: 2013
  2. REVOLADE [Suspect]
     Active Substance: ELTROMBOPAG
     Dosage: 4 DF, QD
     Route: 048
     Dates: start: 20150327
  3. REVOLADE [Suspect]
     Active Substance: ELTROMBOPAG
     Dosage: 4 DF, QD (100MG)
     Route: 048
     Dates: start: 20190411
  4. OMEPRAZOLE. [Concomitant]
     Active Substance: OMEPRAZOLE
     Indication: PRODUCT USED FOR UNKNOWN INDICATION
     Route: 065
  5. ATORVASTATIN [Concomitant]
     Active Substance: ATORVASTATIN
     Indication: PRODUCT USED FOR UNKNOWN INDICATION
     Route: 065
  6. REVOLADE [Suspect]
     Active Substance: ELTROMBOPAG
     Dosage: 4 DF, QD (100MG)
     Route: 048
     Dates: end: 20190128
  7. REVOLADE [Suspect]
     Active Substance: ELTROMBOPAG
     Dosage: UNK
     Route: 048
     Dates: start: 20160831
  8. REVOLADE [Suspect]
     Active Substance: ELTROMBOPAG
     Dosage: 4 DF, QD
     Route: 048
     Dates: end: 201701

REACTIONS (23)
  - Headache [Unknown]
  - Myasthenia gravis [Unknown]
  - Disease recurrence [Unknown]
  - Nausea [Unknown]
  - Rash [Unknown]
  - Dysphonia [Unknown]
  - Limb discomfort [Unknown]
  - Dizziness [Unknown]
  - Dyspnoea [Unknown]
  - Incorrect dose administered [Unknown]
  - Pruritus generalised [Unknown]
  - Haemorrhage [Unknown]
  - Amnesia [Unknown]
  - Pain [Unknown]
  - Gingival bleeding [Unknown]
  - Cough [Unknown]
  - Vaginal haemorrhage [Unknown]
  - Malaise [Unknown]
  - Platelet count abnormal [Unknown]
  - Immune thrombocytopenic purpura [Unknown]
  - Pallor [Unknown]
  - Asthenia [Unknown]
  - Platelet count decreased [Unknown]

NARRATIVE: CASE EVENT DATE: 20150327
